FAERS Safety Report 7102940-1 (Version None)
Quarter: 2010Q4

REPORT INFORMATION
  Report Type: 
  Country: None (occurrence: None)
  Receive Date: 20101108
  Receipt Date: 20101022
  Transmission Date: 20110411
  Serious: No
  Sender: FDA-Public Use
  Company Number: 1000014929

PATIENT
  Age: 50 Year
  Sex: Male

DRUGS (1)
  1. MILNACIPRAN (MILNACIPRAN HYDROCHLORIDE) (50 MILLIGRAM, TABLETS) [Suspect]
     Indication: DEPRESSION
     Dosage: 50 MG (50 MG,1 IN 1 D),ORAL
     Route: 048
     Dates: end: 20100617

REACTIONS (2)
  - BLOOD CATECHOLAMINES INCREASED [None]
  - BLOOD PRESSURE INCREASED [None]
